FAERS Safety Report 5723987-3 (Version None)
Quarter: 2008Q2

REPORT INFORMATION
  Report Type: 
  Country: None (occurrence: None)
  Receive Date: 20080430
  Receipt Date: 20080417
  Transmission Date: 20081010
  Serious: Yes (Other)
  Sender: FDA-Public Use
  Company Number: PHBS2008IN04185

PATIENT
  Sex: Female
  Weight: 1.6 kg

DRUGS (3)
  1. IRON SUPPLEMENTS [Concomitant]
     Dosage: UNK, UNK
     Route: 064
     Dates: end: 20040901
  2. FOLIC ACID [Concomitant]
     Dosage: UNK, UNK
     Route: 064
     Dates: end: 20040901
  3. IMATINIB [Suspect]
     Dosage: UNK, UNK
     Route: 064
     Dates: end: 20040401

REACTIONS (2)
  - DRUG EXPOSURE DURING PREGNANCY [None]
  - PREMATURE BABY [None]
